FAERS Safety Report 18219202 (Version 1)
Quarter: 2020Q3

REPORT INFORMATION
  Report Type: Spontaneous
  Country: US (occurrence: US)
  Receive Date: 20200901
  Receipt Date: 20200901
  Transmission Date: 20201103
  Serious: Yes (Other)
  Sender: FDA-Public Use
  Company Number: US-PFIZER INC-2020335480

PATIENT
  Age: 53 Year
  Sex: Female
  Weight: 80.74 kg

DRUGS (1)
  1. OXALIPLATIN. [Suspect]
     Active Substance: OXALIPLATIN
     Indication: PANCREATIC CARCINOMA
     Dosage: UNK (INFUSION EVERY OTHER WEEK FOR TWO AND A HALF HOURS)
     Dates: start: 202002, end: 20200812

REACTIONS (2)
  - Neuropathy peripheral [Not Recovered/Not Resolved]
  - Nerve injury [Unknown]

NARRATIVE: CASE EVENT DATE: 2020
